FAERS Safety Report 11609656 (Version 2)
Quarter: 2018Q3

REPORT INFORMATION
  Report Type: Spontaneous
  Country: US (occurrence: US)
  Receive Date: 20151007
  Receipt Date: 20180716
  Transmission Date: 20181010
  Serious: Yes (Hospitalization, Other)
  Sender: FDA-Public Use
  Company Number: US-DSJP-DSU-2015-118057

PATIENT

DRUGS (4)
  1. BENICAR [Suspect]
     Active Substance: OLMESARTAN MEDOXOMIL
     Indication: HYPERTENSION
     Dosage: 40 MG, QD
     Route: 048
     Dates: start: 20140311, end: 20140329
  2. BENICAR HCT [Suspect]
     Active Substance: HYDROCHLOROTHIAZIDE\OLMESARTAN MEDOXOMIL
     Dosage: UNK
     Route: 048
     Dates: start: 201403, end: 20140404
  3. TOPAMAX [Suspect]
     Active Substance: TOPIRAMATE
     Indication: NEURALGIA
     Dosage: 100 MG, UNK
     Route: 048
     Dates: start: 201403
  4. BENICAR HCT [Suspect]
     Active Substance: HYDROCHLOROTHIAZIDE\OLMESARTAN MEDOXOMIL
     Indication: HYPERTENSION
     Dosage: 40/12.5 MG, UNK
     Route: 048
     Dates: start: 20070101, end: 20140404

REACTIONS (13)
  - Haemorrhoids [Unknown]
  - Large intestine polyp [Recovered/Resolved]
  - Ileal ulcer [Unknown]
  - Deep vein thrombosis [Unknown]
  - Diverticulum intestinal [Unknown]
  - Cholelithiasis [Unknown]
  - Bile duct stone [Unknown]
  - Hiatus hernia [Unknown]
  - Hepatitis [Unknown]
  - Acute kidney injury [Unknown]
  - Renal cyst [Unknown]
  - Sprue-like enteropathy [Unknown]
  - Haemangioma of liver [Unknown]

NARRATIVE: CASE EVENT DATE: 20100423
